FAERS Safety Report 9310624 (Version 3)
Quarter: 2013Q3

REPORT INFORMATION
  Report Type: Spontaneous
  Country: BR (occurrence: BR)
  Receive Date: 20130527
  Receipt Date: 20130812
  Transmission Date: 20140515
  Serious: Yes (Death, Other)
  Sender: FDA-Public Use
  Company Number: BR-BRISTOL-MYERS SQUIBB COMPANY-18925255

PATIENT
  Age: 65 Year
  Sex: Female

DRUGS (9)
  1. YERVOY [Suspect]
     Indication: METASTATIC MALIGNANT MELANOMA
     Dates: start: 20130322, end: 20130503
  2. CLEXANE [Suspect]
  3. BUTYLSCOPOLAMINE [Concomitant]
  4. MORPHINE [Concomitant]
  5. DIPYRONE [Concomitant]
  6. ONDANSETRON [Concomitant]
  7. PANTOZOL [Concomitant]
  8. CILOSTAZOL [Concomitant]
  9. METOCLOPRAMIDE [Concomitant]

REACTIONS (2)
  - Upper gastrointestinal haemorrhage [Fatal]
  - Metastases to liver [Unknown]
